FAERS Safety Report 10056095 (Version 2)
Quarter: 2014Q2

REPORT INFORMATION
  Report Type: Report from Study
  Country: JP (occurrence: JP)
  Receive Date: 20140403
  Receipt Date: 20140528
  Transmission Date: 20141212
  Serious: Yes (Other)
  Sender: FDA-Public Use
  Company Number: JP-AMGEN INC.-JPNCT2014022366

PATIENT
  Age: 66 Year
  Sex: Male
  Weight: 45 kg

DRUGS (16)
  1. ROMIPLOSTIM - KHK [Suspect]
     Indication: IMMUNE THROMBOCYTOPENIC PURPURA
     Dosage: 4.76 MUG/KG, QD
     Route: 058
     Dates: start: 20130419
  2. PREDONINE                          /00016201/ [Concomitant]
     Indication: IMMUNE THROMBOCYTOPENIC PURPURA
     Dosage: 40 MG, UNK
     Route: 065
     Dates: start: 20130409, end: 20130409
  3. SOL-MELCORT [Concomitant]
     Indication: IMMUNE THROMBOCYTOPENIC PURPURA
     Dosage: 1000 MG, UNK
     Route: 065
     Dates: start: 20130409, end: 20130411
  4. KENKETSU VENOGLOBULIN IH [Concomitant]
     Indication: IMMUNE THROMBOCYTOPENIC PURPURA
     Dosage: 2000 MG, UNK
     Route: 042
     Dates: start: 20130412, end: 20130416
  5. GAMOFA [Concomitant]
     Indication: GASTRIC ULCER
     Dosage: UNK
     Route: 048
  6. SYMBICORT [Concomitant]
     Indication: ASTHMA
     Dosage: UNK
     Route: 055
  7. SENNOSIDE                          /00571901/ [Concomitant]
     Indication: CONSTIPATION
     Dosage: UNK
     Route: 048
  8. FLUTICASONE [Concomitant]
     Indication: ASTHMA
     Dosage: UNK
     Route: 065
  9. FLORID                             /00310801/ [Concomitant]
     Indication: OESOPHAGEAL CANDIDIASIS
     Dosage: UNK
     Route: 049
  10. BAKTAR [Concomitant]
     Indication: PNEUMOCYSTIS JIROVECII PNEUMONIA
     Dosage: UNK
     Route: 048
  11. FUNGUARD [Concomitant]
     Indication: PNEUMONIA
     Dosage: UNK
     Route: 065
  12. PARIET [Concomitant]
     Indication: GASTRIC ULCER
     Dosage: UNK
     Route: 048
  13. ELCITONIN [Concomitant]
     Indication: OSTEOPOROSIS
     Dosage: UNK
     Route: 065
  14. REBAMIPIDE [Concomitant]
     Indication: GASTRIC ULCER
     Dosage: UNK
     Route: 065
  15. DOMPERIDONE [Concomitant]
     Indication: NAUSEA
     Dosage: UNK
     Route: 065
  16. PRIMPERAN [Concomitant]
     Indication: NAUSEA
     Dosage: UNK
     Route: 065

REACTIONS (3)
  - Pneumocystis jirovecii pneumonia [Recovered/Resolved]
  - Thoracic vertebral fracture [Recovering/Resolving]
  - Flushing [Recovering/Resolving]
